FAERS Safety Report 25022291 (Version 1)
Quarter: 2025Q1

REPORT INFORMATION
  Report Type: Spontaneous
  Country: US (occurrence: US)
  Receive Date: 20250228
  Receipt Date: 20250228
  Transmission Date: 20250409
  Serious: No
  Sender: TAKEDA
  Company Number: US-TAKEDA-2025TUS018903

PATIENT
  Sex: Male

DRUGS (1)
  1. PENTASA [Suspect]
     Active Substance: MESALAMINE
     Indication: Gastrointestinal inflammation

REACTIONS (3)
  - Drug ineffective [Unknown]
  - Insurance issue [Unknown]
  - Inability to afford medication [Unknown]
